FAERS Safety Report 9376443 (Version 3)
Quarter: 2013Q3

REPORT INFORMATION
  Report Type: Spontaneous
  Country: BE (occurrence: BE)
  Receive Date: 20130701
  Receipt Date: 20130905
  Transmission Date: 20140515
  Serious: Yes (Hospitalization)
  Sender: FDA-Public Use
  Company Number: BE-AMGEN-BELSP2013045647

PATIENT
  Age: 62 Year
  Sex: Male
  Weight: 52.52 kg

DRUGS (9)
  1. XGEVA [Suspect]
     Indication: METASTASES TO BONE
     Dosage: 1 DF, UNK
     Route: 030
     Dates: start: 20130430
  2. CRIZOTINIB [Concomitant]
     Indication: NON-SMALL CELL LUNG CANCER
     Dosage: 250 MG, BID
     Route: 048
     Dates: start: 20130218
  3. DUPHALAC                           /00163401/ [Concomitant]
     Indication: CONSTIPATION
     Dosage: UNK
     Dates: start: 20130227, end: 20130507
  4. PANTOMED                           /01263204/ [Concomitant]
     Indication: PROPHYLAXIS
     Dosage: UNK
     Dates: start: 20130227
  5. EFFORTIL [Concomitant]
     Indication: HYPOTENSION
     Dosage: UNK
     Dates: start: 20130318
  6. MEDROL                             /00049601/ [Concomitant]
     Indication: NAUSEA
     Dosage: UNK
     Dates: start: 20130430, end: 20130507
  7. MEDROL                             /00049601/ [Concomitant]
     Dosage: UNK
     Dates: start: 20130508
  8. CACIT D3 [Concomitant]
     Indication: MINERAL SUPPLEMENTATION
     Dosage: UNK
     Dates: start: 20130430
  9. PRIMPERAN [Concomitant]
     Indication: NAUSEA
     Dosage: UNK
     Dates: start: 20130206, end: 20130507

REACTIONS (2)
  - Urinary retention [Recovered/Resolved]
  - Incorrect route of drug administration [Unknown]
